FAERS Safety Report 6636658-6 (Version None)
Quarter: 2010Q1

REPORT INFORMATION
  Report Type: 
  Country: None (occurrence: None)
  Receive Date: 20100316
  Receipt Date: 20100308
  Transmission Date: 20100710
  Serious: Yes (Hospitalization)
  Sender: FDA-Public Use
  Company Number: A0849855A

PATIENT
  Age: 66 Year
  Sex: Male
  Weight: 120 kg

DRUGS (1)
  1. ROSIGLITAZONE [Suspect]
     Dosage: 4MG SEE DOSAGE TEXT
     Route: 048
     Dates: start: 20000101, end: 20060101

REACTIONS (4)
  - BALANCE DISORDER [None]
  - CORONARY ARTERY DISEASE [None]
  - PAIN [None]
  - TRANSIENT ISCHAEMIC ATTACK [None]
